FAERS Safety Report 24308091 (Version 3)
Quarter: 2024Q3

REPORT INFORMATION
  Report Type: Spontaneous
  Country: JP (occurrence: JP)
  Receive Date: 20240911
  Receipt Date: 20240923
  Transmission Date: 20241016
  Serious: Yes (Death, Life-Threatening, Hospitalization, Other)
  Sender: SANOFI AVENTIS
  Company Number: JP-MLMSERVICE-20240902-PI176890-00239-1

PATIENT
  Age: 50 Year
  Sex: Male
  Weight: 107.4 kg

DRUGS (6)
  1. PREGABALIN [Suspect]
     Active Substance: PREGABALIN
     Dosage: 4200 MG (28 PREGABALIN 150 MG TABLETS)
  2. ZOLPIDEM TARTRATE [Suspect]
     Active Substance: ZOLPIDEM TARTRATE
     Dosage: 200 MG (20 ZOLPIDEM 10 MG TABLETS)
  3. FLUNITRAZEPAM [Suspect]
     Active Substance: FLUNITRAZEPAM
     Dosage: 20 MG (10 FLUNITRAZEPAM 2 MG TABLETS)
  4. SUVOREXANT [Concomitant]
     Active Substance: SUVOREXANT
     Dosage: UNK
  5. LOXOPROFEN [Concomitant]
     Active Substance: LOXOPROFEN
     Dosage: UNK
  6. AMLODIPINE [Concomitant]
     Active Substance: AMLODIPINE BESYLATE
     Dosage: UNK

REACTIONS (4)
  - Pulmonary oedema [Fatal]
  - Urinary incontinence [Fatal]
  - Toxicity to various agents [Fatal]
  - Overdose [Fatal]
